FAERS Safety Report 8037927 (Version 12)
Quarter: 2013Q3

REPORT INFORMATION
  Report Type: Spontaneous
  Country: US (occurrence: US)
  Receive Date: 20110715
  Receipt Date: 20130815
  Transmission Date: 20140515
  Serious: Yes (Hospitalization, Other)
  Sender: FDA-Public Use
  Company Number: US-ASTRAZENECA-2010SE05175

PATIENT
  Age: 60 Year
  Sex: Female
  Weight: 51.3 kg

DRUGS (65)
  1. SEROQUEL [Suspect]
     Indication: CONVULSION
     Route: 048
  2. SEROQUEL [Suspect]
     Indication: SLEEP DISORDER
     Route: 048
  3. SEROQUEL [Suspect]
     Indication: ANXIETY
     Route: 048
  4. SEROQUEL [Suspect]
     Indication: CONVULSION
     Route: 048
     Dates: start: 2008
  5. SEROQUEL [Suspect]
     Indication: SLEEP DISORDER
     Route: 048
     Dates: start: 2008
  6. SEROQUEL [Suspect]
     Indication: ANXIETY
     Route: 048
     Dates: start: 2008
  7. SEROQUEL [Suspect]
     Indication: CONVULSION
     Route: 048
     Dates: start: 200911
  8. SEROQUEL [Suspect]
     Indication: SLEEP DISORDER
     Route: 048
     Dates: start: 200911
  9. SEROQUEL [Suspect]
     Indication: ANXIETY
     Route: 048
     Dates: start: 200911
  10. SEROQUEL [Suspect]
     Indication: CONVULSION
     Route: 048
     Dates: start: 2009
  11. SEROQUEL [Suspect]
     Indication: SLEEP DISORDER
     Route: 048
     Dates: start: 2009
  12. SEROQUEL [Suspect]
     Indication: ANXIETY
     Route: 048
     Dates: start: 2009
  13. SEROQUEL [Suspect]
     Indication: CONVULSION
     Route: 048
     Dates: start: 2009
  14. SEROQUEL [Suspect]
     Indication: SLEEP DISORDER
     Route: 048
     Dates: start: 2009
  15. SEROQUEL [Suspect]
     Indication: ANXIETY
     Route: 048
     Dates: start: 2009
  16. SEROQUEL [Suspect]
     Indication: CONVULSION
     Route: 048
  17. SEROQUEL [Suspect]
     Indication: SLEEP DISORDER
     Route: 048
  18. SEROQUEL [Suspect]
     Indication: ANXIETY
     Route: 048
  19. SEROQUEL [Suspect]
     Indication: CONVULSION
     Route: 048
  20. SEROQUEL [Suspect]
     Indication: SLEEP DISORDER
     Route: 048
  21. SEROQUEL [Suspect]
     Indication: ANXIETY
     Route: 048
  22. SEROQUEL [Suspect]
     Indication: CONVULSION
     Route: 048
  23. SEROQUEL [Suspect]
     Indication: SLEEP DISORDER
     Route: 048
  24. SEROQUEL [Suspect]
     Indication: ANXIETY
     Route: 048
  25. SEROQUEL [Suspect]
     Indication: CONVULSION
     Route: 048
  26. SEROQUEL [Suspect]
     Indication: SLEEP DISORDER
     Route: 048
  27. SEROQUEL [Suspect]
     Indication: ANXIETY
     Route: 048
  28. SEROQUEL [Suspect]
     Indication: CONVULSION
     Dosage: 3-4 TABLETS AT NIGHT
     Route: 048
  29. SEROQUEL [Suspect]
     Indication: SLEEP DISORDER
     Dosage: 3-4 TABLETS AT NIGHT
     Route: 048
  30. SEROQUEL [Suspect]
     Indication: ANXIETY
     Dosage: 3-4 TABLETS AT NIGHT
     Route: 048
  31. SEROQUEL [Suspect]
     Indication: CONVULSION
     Route: 048
     Dates: start: 2010
  32. SEROQUEL [Suspect]
     Indication: SLEEP DISORDER
     Route: 048
     Dates: start: 2010
  33. SEROQUEL [Suspect]
     Indication: ANXIETY
     Route: 048
     Dates: start: 2010
  34. SEROQUEL [Suspect]
     Indication: CONVULSION
     Route: 048
     Dates: start: 2011
  35. SEROQUEL [Suspect]
     Indication: SLEEP DISORDER
     Route: 048
     Dates: start: 2011
  36. SEROQUEL [Suspect]
     Indication: ANXIETY
     Route: 048
     Dates: start: 2011
  37. SEROQUEL [Suspect]
     Indication: CONVULSION
     Route: 048
  38. SEROQUEL [Suspect]
     Indication: SLEEP DISORDER
     Route: 048
  39. SEROQUEL [Suspect]
     Indication: ANXIETY
     Route: 048
  40. SEROQUEL [Suspect]
     Indication: CONVULSION
     Dosage: GENERIC
     Route: 048
  41. SEROQUEL [Suspect]
     Indication: SLEEP DISORDER
     Dosage: GENERIC
     Route: 048
  42. SEROQUEL [Suspect]
     Indication: ANXIETY
     Dosage: GENERIC
     Route: 048
  43. IRON PILL [Suspect]
     Indication: ANAEMIA
     Route: 048
     Dates: start: 20130803, end: 20130807
  44. LAMICTAL [Concomitant]
     Indication: CONVULSION
     Dates: start: 2009
  45. LAMICTAL [Concomitant]
     Indication: DEPRESSION
     Dates: start: 2009
  46. LAMICTAL [Concomitant]
     Indication: ANXIETY
     Dates: start: 2009
  47. LAMICTAL [Concomitant]
     Indication: CONVULSION
  48. LAMICTAL [Concomitant]
     Indication: DEPRESSION
  49. LAMICTAL [Concomitant]
     Indication: ANXIETY
  50. LAMICTAL [Concomitant]
     Indication: CONVULSION
  51. LAMICTAL [Concomitant]
     Indication: DEPRESSION
  52. LAMICTAL [Concomitant]
     Indication: ANXIETY
  53. LAMICTAL [Concomitant]
     Indication: CONVULSION
  54. LAMICTAL [Concomitant]
     Indication: DEPRESSION
  55. LAMICTAL [Concomitant]
     Indication: ANXIETY
  56. LAMICTAL [Concomitant]
     Indication: CONVULSION
     Dosage: DAILY
     Route: 048
  57. LAMICTAL [Concomitant]
     Indication: DEPRESSION
     Dosage: DAILY
     Route: 048
  58. LAMICTAL [Concomitant]
     Indication: ANXIETY
     Dosage: DAILY
     Route: 048
  59. DEPAKOTE ER [Concomitant]
     Indication: CONVULSION
     Route: 048
     Dates: start: 2009
  60. DEPAKOTE ER [Concomitant]
     Indication: SLEEP DISORDER
     Route: 048
     Dates: start: 2009
  61. DEPAKOTE ER [Concomitant]
     Indication: CONVULSION
     Route: 048
  62. DEPAKOTE ER [Concomitant]
     Indication: SLEEP DISORDER
     Route: 048
  63. DEPAKOTE ER [Concomitant]
     Indication: CONVULSION
     Dosage: DAILY
     Route: 048
  64. DEPAKOTE ER [Concomitant]
     Indication: SLEEP DISORDER
     Dosage: DAILY
     Route: 048
  65. DILANTIN [Concomitant]
     Indication: CONVULSION
     Dosage: DAILY
     Route: 048

REACTIONS (32)
  - Road traffic accident [Unknown]
  - Pelvic fracture [Unknown]
  - Disorientation [Recovered/Resolved]
  - Complex partial seizures [Unknown]
  - Convulsion [Unknown]
  - Grand mal convulsion [Recovered/Resolved]
  - Memory impairment [Unknown]
  - Depression [Unknown]
  - Amnesia [Unknown]
  - Stress [Unknown]
  - Abnormal sleep-related event [Unknown]
  - Head injury [Unknown]
  - Insomnia [Unknown]
  - Headache [Unknown]
  - Feeling abnormal [Unknown]
  - Headache [Unknown]
  - Aphagia [Unknown]
  - Drug intolerance [Unknown]
  - Malaise [Unknown]
  - Fall [Recovered/Resolved]
  - Joint injury [Recovered/Resolved]
  - Gait disturbance [Recovered/Resolved]
  - Fatigue [Unknown]
  - Tremor [Unknown]
  - Dry mouth [Unknown]
  - Dizziness [Recovered/Resolved]
  - Somnolence [Unknown]
  - Drug dose omission [Unknown]
  - Off label use [Not Recovered/Not Resolved]
  - Intentional drug misuse [Unknown]
  - Intentional drug misuse [Unknown]
  - Drug ineffective [Unknown]
